FAERS Safety Report 9070394 (Version 2)
Quarter: 2013Q3

REPORT INFORMATION
  Report Type: Spontaneous
  Country: US (occurrence: US)
  Receive Date: 20130215
  Receipt Date: 20130816
  Transmission Date: 20140515
  Serious: No
  Sender: FDA-Public Use
  Company Number: US-BAYER-2013-012797

PATIENT
  Age: 55 Year
  Sex: Female
  Weight: 100 kg

DRUGS (6)
  1. BETASERON [Suspect]
     Indication: MULTIPLE SCLEROSIS
     Dosage: 8 MIU, QOD
     Route: 058
     Dates: start: 20100804
  2. RISPERIDONE [Concomitant]
     Dosage: 1 MG, UNK
  3. ALPRAZOLAM [Concomitant]
     Dosage: 0.25 MG, UNK
  4. HYDROXYZINE HCL [Concomitant]
     Dosage: 10 MG, UNK
  5. PROZAC [Concomitant]
     Dosage: 20 MG, UNK
  6. VESICARE [Concomitant]
     Dosage: 10 MG, UNK

REACTIONS (2)
  - Injection site urticaria [None]
  - Injection site rash [Recovered/Resolved]
